FAERS Safety Report 7480498-5 (Version None)
Quarter: 2011Q2

REPORT INFORMATION
  Report Type: 
  Country: None (occurrence: None)
  Receive Date: 20110516
  Receipt Date: 20110502
  Transmission Date: 20111010
  Serious: Yes (Other)
  Sender: FDA-Public Use
  Company Number: US-JNJFOC-20110311587

PATIENT
  Sex: Female
  Weight: 68.95 kg

DRUGS (4)
  1. REMICADE [Suspect]
     Indication: RHEUMATOID ARTHRITIS
     Route: 042
     Dates: start: 20000101
  2. GOLD [Concomitant]
     Indication: RHEUMATOID ARTHRITIS
     Route: 030
     Dates: start: 19980101
  3. METHOTREXATE [Concomitant]
     Indication: RHEUMATOID ARTHRITIS
     Route: 048
     Dates: start: 19980101
  4. HYDROCODONE BITARTRATE [Concomitant]
     Indication: BREAKTHROUGH PAIN
     Dosage: UPTO 4 TABLETS A DAY
     Route: 048

REACTIONS (6)
  - TREMOR [None]
  - RENAL DISORDER [None]
  - NERVOUSNESS [None]
  - BREAKTHROUGH PAIN [None]
  - ARTHRITIS [None]
  - ABDOMINAL DISCOMFORT [None]
